FAERS Safety Report 16411498 (Version 2)
Quarter: 2019Q3

REPORT INFORMATION
  Report Type: Spontaneous
  Country: JP (occurrence: JP)
  Receive Date: 20190610
  Receipt Date: 20190705
  Transmission Date: 20191004
  Serious: Yes (Other)
  Sender: FDA-Public Use
  Company Number: JP-PFIZER INC-2019111612

PATIENT
  Age: 78 Year
  Sex: Male

DRUGS (4)
  1. CELECOX [Suspect]
     Active Substance: CELECOXIB
     Indication: BACK PAIN
     Dosage: 100 MG, 2X/DAY
     Route: 048
     Dates: start: 20190115, end: 20190301
  2. LYRICA [Suspect]
     Active Substance: PREGABALIN
     Dosage: 150 MG, DAILY
     Route: 048
  3. CELECOX [Suspect]
     Active Substance: CELECOXIB
     Indication: PAIN IN EXTREMITY
  4. LYRICA [Suspect]
     Active Substance: PREGABALIN
     Indication: SCIATICA
     Dosage: 75 MG, DAILY (MORNING 25 MG; EVENING 50 MG)
     Route: 048
     Dates: start: 20190115, end: 20190118

REACTIONS (6)
  - Anuria [Recovering/Resolving]
  - Abdominal distension [Recovering/Resolving]
  - Urinary retention [Recovered/Resolved]
  - Benign prostatic hyperplasia [Recovering/Resolving]
  - Abdominal pain [Recovering/Resolving]
  - Dysuria [Recovering/Resolving]

NARRATIVE: CASE EVENT DATE: 20190117
